FAERS Safety Report 5146545-0 (Version None)
Quarter: 2006Q4

REPORT INFORMATION
  Report Type: 
  Country: None (occurrence: None)
  Receive Date: 20061109
  Receipt Date: 20061031
  Transmission Date: 20070319
  Serious: Yes (Hospitalization)
  Sender: FDA-Public Use
  Company Number: FR-JNJFOC-20061100767

PATIENT
  Age: 25 Year
  Sex: Male

DRUGS (2)
  1. RISPERDAL CONSTA [Suspect]
     Route: 030
  2. RISPERDAL CONSTA [Suspect]
     Indication: PSYCHOTIC DISORDER
     Route: 030

REACTIONS (3)
  - DRUG INEFFECTIVE [None]
  - HALLUCINATION [None]
  - PERSECUTORY DELUSION [None]
